FAERS Safety Report 18862964 (Version 2)
Quarter: 2021Q1

REPORT INFORMATION
  Report Type: Report from Study
  Country: AT (occurrence: AT)
  Receive Date: 20210208
  Receipt Date: 20210226
  Transmission Date: 20210420
  Serious: Yes (Death)
  Sender: FDA-Public Use
  Company Number: AT-SEAGEN-2021SGN00536

PATIENT
  Sex: Male
  Weight: 76 kg

DRUGS (6)
  1. BRENTUXIMAB VEDOTIN [Suspect]
     Active Substance: BRENTUXIMAB VEDOTIN
     Dosage: 84 MG
     Route: 065
     Dates: start: 20201016
  2. BRENTUXIMAB VEDOTIN [Suspect]
     Active Substance: BRENTUXIMAB VEDOTIN
     Dosage: UNK
     Route: 065
     Dates: start: 20200918
  3. BRENTUXIMAB VEDOTIN [Suspect]
     Active Substance: BRENTUXIMAB VEDOTIN
     Dosage: 83 MG
     Route: 065
     Dates: start: 20200904
  4. BRENTUXIMAB VEDOTIN [Suspect]
     Active Substance: BRENTUXIMAB VEDOTIN
     Dosage: 84 MG
     Route: 065
     Dates: start: 20201002
  5. BRENTUXIMAB VEDOTIN [Suspect]
     Active Substance: BRENTUXIMAB VEDOTIN
     Indication: HODGKIN^S DISEASE
     Dosage: 140 MG
     Route: 065
     Dates: start: 20200718
  6. BRENTUXIMAB VEDOTIN [Suspect]
     Active Substance: BRENTUXIMAB VEDOTIN
     Dosage: 83 MG
     Route: 065
     Dates: start: 20200822

REACTIONS (3)
  - Infection [Recovered/Resolved]
  - Death [Fatal]
  - Sinusitis [Recovered/Resolved]

NARRATIVE: CASE EVENT DATE: 20200726
